FAERS Safety Report 6920276-6 (Version None)
Quarter: 2010Q3

REPORT INFORMATION
  Report Type: 
  Country: None (occurrence: None)
  Receive Date: 20100809
  Receipt Date: 20100727
  Transmission Date: 20110219
  Serious: Yes (Hospitalization)
  Sender: FDA-Public Use
  Company Number: B0668207A

PATIENT
  Age: 13 Year
  Sex: Female

DRUGS (5)
  1. VENTOLIN [Suspect]
     Dosage: INHALED
     Route: 055
  2. BIRTH CONTROL [Concomitant]
  3. COUGH MEDICATION [Concomitant]
  4. DEXTROMETHORPHAN HBR [Concomitant]
  5. GUAIFENESIN [Concomitant]

REACTIONS (11)
  - BLOOD POTASSIUM DECREASED [None]
  - BLOOD PRESSURE DIASTOLIC DECREASED [None]
  - FEELING HOT [None]
  - HEADACHE [None]
  - NAUSEA [None]
  - NEUTROPHIL COUNT INCREASED [None]
  - OVERDOSE [None]
  - PALPITATIONS [None]
  - SINUS TACHYCARDIA [None]
  - TREMOR [None]
  - VISION BLURRED [None]
